FAERS Safety Report 4377718-2 (Version None)
Quarter: 2004Q2

REPORT INFORMATION
  Report Type: 
  Country: None (occurrence: None)
  Receive Date: 20040608
  Receipt Date: 20040520
  Transmission Date: 20050107
  Serious: Yes (Hospitalization)
  Sender: FDA-Public Use
  Company Number: 2004PL000038

PATIENT
  Age: 18 Year
  Sex: Female

DRUGS (1)
  1. IMURAN [Suspect]
     Indication: CROHN'S DISEASE
     Dosage: 75 MG; DAILY; ORAL
     Route: 048

REACTIONS (1)
  - PNEUMONIA HERPES VIRAL [None]
